FAERS Safety Report 6030671-8 (Version None)
Quarter: 2009Q1

REPORT INFORMATION
  Report Type: 
  Country: None (occurrence: None)
  Receive Date: 20090106
  Receipt Date: 20090106
  Transmission Date: 20090719
  Serious: Yes (Other)
  Sender: FDA-Public Use
  Company Number: None

PATIENT
  Age: 36 Year
  Sex: Female
  Weight: 72.5755 kg

DRUGS (3)
  1. EQUATE PAIN RELIEVER PM EXTRA STRENGTH [Suspect]
     Indication: INSOMNIA
     Dosage: 2 TABLETS BEDTIME PO
     Route: 048
     Dates: end: 20090103
  2. ZOLOFT [Suspect]
     Indication: ANXIETY
     Dosage: 1 TABLET A DAY ONCE DAILY PO
     Route: 048
     Dates: start: 20050101, end: 20090105
  3. ZOLOFT [Suspect]
     Indication: DEPRESSION
     Dosage: 1 TABLET A DAY ONCE DAILY PO
     Route: 048
     Dates: start: 20050101, end: 20090105

REACTIONS (3)
  - DRUG INTERACTION [None]
  - HYPOAESTHESIA [None]
  - PARAESTHESIA [None]
